FAERS Safety Report 8421101-7 (Version None)
Quarter: 2012Q2

REPORT INFORMATION
  Report Type: 
  Country: None (occurrence: None)
  Receive Date: 20120604
  Receipt Date: 20120604
  Transmission Date: 20120825
  Serious: Yes (Other)
  Sender: FDA-Public Use
  Company Number: None

PATIENT
  Sex: Male
  Weight: 27.2158 kg

DRUGS (1)
  1. MUPIROCIN [Suspect]
     Indication: INFECTED BITES
     Dosage: 3X DAILY TOP
     Route: 061
     Dates: start: 20120601, end: 20120601

REACTIONS (3)
  - PYREXIA [None]
  - FLUSHING [None]
  - OCULAR HYPERAEMIA [None]
